FAERS Safety Report 7766269-0 (Version None)
Quarter: 2011Q3

REPORT INFORMATION
  Report Type: 
  Country: None (occurrence: None)
  Receive Date: 20110922
  Receipt Date: 20110915
  Transmission Date: 20111222
  Serious: Yes (Death)
  Sender: FDA-Public Use
  Company Number: US-BIOGENIDEC-2011BI007931

PATIENT
  Age: 56 Year
  Sex: Female
  Weight: 67 kg

DRUGS (2)
  1. TYSABRI [Suspect]
     Indication: MULTIPLE SCLEROSIS
     Route: 042
     Dates: start: 20081010, end: 20110225
  2. NARCOTICS (NOS) [Concomitant]

REACTIONS (3)
  - VOMITING [None]
  - OVERDOSE [None]
  - MALAISE [None]
